FAERS Safety Report 5535190-0 (Version None)
Quarter: 2007Q4

REPORT INFORMATION
  Report Type: 
  Country: None (occurrence: None)
  Receive Date: 20071206
  Receipt Date: 20071126
  Transmission Date: 20080405
  Serious: Yes (Other)
  Sender: FDA-Public Use
  Company Number: PHHY2007JP00680

PATIENT
  Age: 83 Year
  Sex: Female

DRUGS (6)
  1. GLEEVEC [Suspect]
     Indication: CHRONIC MYELOID LEUKAEMIA
     Dosage: 200MG / DAY
     Route: 048
     Dates: start: 20031014, end: 20031224
  2. GLEEVEC [Suspect]
     Dosage: 100MG/ DAY
     Route: 048
     Dates: start: 20031225, end: 20040425
  3. GLEEVEC [Suspect]
     Dosage: 200 MG/ DAY
     Route: 048
     Dates: start: 20040425, end: 20040510
  4. GLEEVEC [Suspect]
     Dosage: 200MG/ DAY
     Route: 048
     Dates: start: 20040511, end: 20070515
  5. GLEEVEC [Suspect]
     Dosage: 300MG/ DAY
     Route: 048
     Dates: start: 20070516, end: 20070524
  6. GLEEVEC [Suspect]
     Dosage: 300MG /DAY
     Route: 048
     Dates: start: 20070525

REACTIONS (5)
  - CARDIAC FAILURE [None]
  - HAEMATOCRIT DECREASED [None]
  - HAEMOGLOBIN DECREASED [None]
  - PULMONARY HYPERTENSION [None]
  - RED BLOOD CELL COUNT DECREASED [None]
